FAERS Safety Report 24429331 (Version 1)
Quarter: 2024Q4

REPORT INFORMATION
  Report Type: Report from Study
  Country: US (occurrence: US)
  Receive Date: 20241011
  Receipt Date: 20241011
  Transmission Date: 20250114
  Serious: Yes (Other)
  Sender: TEVA
  Company Number: US-TEVA-VS-3251934

PATIENT
  Age: 61 Year
  Sex: Female

DRUGS (19)
  1. AUSTEDO XR [Suspect]
     Active Substance: DEUTETRABENAZINE
     Indication: Dyskinesia
     Route: 048
  2. ABILIFY [Concomitant]
     Active Substance: ARIPIPRAZOLE
     Indication: Product used for unknown indication
     Route: 065
  3. CYCLOBENZAPRINE [Concomitant]
     Active Substance: CYCLOBENZAPRINE
     Indication: Product used for unknown indication
     Route: 065
  4. Medroxyproge [Concomitant]
     Indication: Product used for unknown indication
     Route: 065
  5. PHENTERMINE [Concomitant]
     Active Substance: PHENTERMINE\PHENTERMINE HYDROCHLORIDE
     Indication: Product used for unknown indication
     Route: 065
  6. Trelegy Elli AEP [Concomitant]
     Indication: Product used for unknown indication
     Dosage: 100-62.5
     Route: 065
  7. Albuterol Su [Concomitant]
     Indication: Product used for unknown indication
     Dosage: AER, 108(90
     Route: 065
  8. Amlodipine B [Concomitant]
     Indication: Product used for unknown indication
     Route: 065
  9. Buspirone HC [Concomitant]
     Indication: Product used for unknown indication
     Route: 065
  10. Carbidoba-Le [Concomitant]
     Indication: Product used for unknown indication
     Dosage: TBC, 25-100MG
     Route: 065
  11. ESCITALOPRAM [Concomitant]
     Active Substance: ESCITALOPRAM OXALATE
     Indication: Product used for unknown indication
     Route: 065
  12. ESTRADIOL [Concomitant]
     Active Substance: ESTRADIOL
     Indication: Product used for unknown indication
     Route: 065
  13. GABAPENTIN [Concomitant]
     Active Substance: GABAPENTIN
     Indication: Product used for unknown indication
     Route: 065
  14. IBUPROFEN [Concomitant]
     Active Substance: IBUPROFEN
     Indication: Product used for unknown indication
     Route: 065
  15. LINZESS [Concomitant]
     Active Substance: LINACLOTIDE
     Indication: Product used for unknown indication
     Route: 065
  16. Ropinirole h [Concomitant]
     Indication: Product used for unknown indication
     Route: 065
  17. Spironolacto [Concomitant]
     Indication: Product used for unknown indication
     Route: 065
  18. UBRELVY [Concomitant]
     Active Substance: UBROGEPANT
     Indication: Product used for unknown indication
     Route: 065
  19. LATUDA [Concomitant]
     Active Substance: LURASIDONE HYDROCHLORIDE
     Indication: Product used for unknown indication

REACTIONS (5)
  - Bronchitis [Not Recovered/Not Resolved]
  - Depression [Not Recovered/Not Resolved]
  - Insomnia [Not Recovered/Not Resolved]
  - Disturbance in attention [Not Recovered/Not Resolved]
  - Back pain [Not Recovered/Not Resolved]
